FAERS Safety Report 8933709 (Version 1)
Quarter: 2012Q4

REPORT INFORMATION
  Report Type: 
  Country: JP (occurrence: JP)
  Receive Date: 20121129
  Receipt Date: 20121129
  Transmission Date: 20130627
  Serious: Yes (Other)
  Sender: FDA-Public Use
  Company Number: PHHY2012JP107286

PATIENT
  Sex: Male

DRUGS (7)
  1. METHYLPHENIDATE [Suspect]
     Indication: SOMNOLENCE
     Dosage: 20 mg/day in 2 doses after breakfast and lunch
     Route: 048
  2. MORPHINE HYDROCHLORIDE [Concomitant]
     Indication: PAIN
     Dosage: 60 mg/day (in 6 doses)
     Route: 048
  3. MORPHINE HYDROCHLORIDE [Concomitant]
     Dosage: 90 mg/day on day 2
     Route: 048
  4. MORPHINE HYDROCHLORIDE [Concomitant]
     Dosage: 120 mg/day on day 3
     Route: 048
  5. DICLOFENAC SODIUM [Concomitant]
     Indication: PAIN
     Dosage: 150 mg/day (in 3 doses)
  6. SODIUM VALPROATE [Concomitant]
     Dosage: 300 mg per day
  7. PROCHLORPERAZINE MALEATE [Concomitant]
     Dosage: 15 mg/day in 3 doses

REACTIONS (17)
  - Osteomyelitis [Recovering/Resolving]
  - Sepsis [Recovering/Resolving]
  - Neuroleptic malignant syndrome [Recovering/Resolving]
  - Erythema [Recovering/Resolving]
  - Hyperhidrosis [Recovering/Resolving]
  - Tachycardia [Recovering/Resolving]
  - Pyrexia [Recovering/Resolving]
  - Malaise [Recovered/Resolved]
  - Decreased appetite [Recovering/Resolving]
  - Gait disturbance [Recovering/Resolving]
  - Amnesia [Recovering/Resolving]
  - Speech disorder [Recovering/Resolving]
  - Nightmare [Recovering/Resolving]
  - Delirium [Recovering/Resolving]
  - Altered state of consciousness [Recovering/Resolving]
  - Myoglobin urine present [Recovering/Resolving]
  - Myoglobin blood increased [Recovered/Resolved]
